FAERS Safety Report 19026258 (Version 1)
Quarter: 2021Q1

REPORT INFORMATION
  Report Type: Report from Study
  Country: None (occurrence: US)
  Receive Date: 20210318
  Receipt Date: 20210318
  Transmission Date: 20210420
  Serious: Yes (Other)
  Sender: FDA-Public Use
  Company Number: US-ABBVIE-20K-163-3658647-00

PATIENT
  Age: 37 Year
  Sex: Female

DRUGS (7)
  1. PREDNISONE. [Concomitant]
     Active Substance: PREDNISONE
     Dosage: LOWER DOSE
     Route: 065
  2. HUMIRA [Suspect]
     Active Substance: ADALIMUMAB
     Indication: ANKYLOSING SPONDYLITIS
     Dosage: CITRATE FREE
     Route: 058
     Dates: start: 20200729, end: 2021
  3. ALBUTEROL. [Suspect]
     Active Substance: ALBUTEROL
     Indication: PRODUCT USED FOR UNKNOWN INDICATION
     Route: 065
  4. COVID?19 VACCINE [Concomitant]
     Indication: COVID-19 IMMUNISATION
     Route: 030
     Dates: start: 2021, end: 2021
  5. HUMIRA [Suspect]
     Active Substance: ADALIMUMAB
     Indication: PSORIASIS
  6. HUMIRA [Suspect]
     Active Substance: ADALIMUMAB
     Indication: UVEITIS
     Dosage: CITRATE FREE
     Route: 058
     Dates: start: 2021
  7. PREDNISONE. [Concomitant]
     Active Substance: PREDNISONE
     Indication: PRODUCT USED FOR UNKNOWN INDICATION
     Route: 065

REACTIONS (40)
  - Off label use [Unknown]
  - Carditis [Recovered/Resolved]
  - Musculoskeletal stiffness [Recovering/Resolving]
  - Discomfort [Recovering/Resolving]
  - General physical condition abnormal [Unknown]
  - Intervertebral disc protrusion [Unknown]
  - Neck pain [Not Recovered/Not Resolved]
  - Pneumonitis [Recovering/Resolving]
  - Injection site irritation [Not Recovered/Not Resolved]
  - Rash [Unknown]
  - Injection site erythema [Not Recovered/Not Resolved]
  - Formication [Unknown]
  - Arthralgia [Not Recovered/Not Resolved]
  - Spinal column injury [Unknown]
  - Injection site haemorrhage [Not Recovered/Not Resolved]
  - Injection site bruising [Not Recovered/Not Resolved]
  - Piloerection [Unknown]
  - Discomfort [Unknown]
  - Fatigue [Recovering/Resolving]
  - Increased tendency to bruise [Not Recovered/Not Resolved]
  - Iron deficiency anaemia [Unknown]
  - Pain in extremity [Not Recovered/Not Resolved]
  - Condition aggravated [Unknown]
  - Drug hypersensitivity [Recovered/Resolved]
  - Dysstasia [Not Recovered/Not Resolved]
  - Joint range of motion decreased [Not Recovered/Not Resolved]
  - Nausea [Recovered/Resolved]
  - Haemangioma of bone [Unknown]
  - Back pain [Not Recovered/Not Resolved]
  - Mobility decreased [Not Recovered/Not Resolved]
  - Carditis [Unknown]
  - Hypoaesthesia [Unknown]
  - Gastrointestinal inflammation [Unknown]
  - Loss of personal independence in daily activities [Recovering/Resolving]
  - Dysphagia [Unknown]
  - Dyspnoea [Unknown]
  - Paraesthesia [Recovering/Resolving]
  - Injection site pruritus [Not Recovered/Not Resolved]
  - Spinal stenosis [Unknown]
  - Pain [Unknown]

NARRATIVE: CASE EVENT DATE: 2020
